FAERS Safety Report 23323724 (Version 1)
Quarter: 2023Q4

REPORT INFORMATION
  Report Type: Spontaneous
  Country: US (occurrence: US)
  Receive Date: 20231220
  Receipt Date: 20231220
  Transmission Date: 20240110
  Serious: No
  Sender: FDA-Public Use
  Company Number: US-SANDOZ-SDZ2023US070646

PATIENT
  Sex: Male

DRUGS (3)
  1. CLOFAZIMINE [Suspect]
     Active Substance: CLOFAZIMINE
     Indication: Arthritis infective
     Dosage: UNK
     Route: 065
  2. TIGECYCLINE [Concomitant]
     Active Substance: TIGECYCLINE
     Indication: Product used for unknown indication
     Dosage: UNK
     Route: 065
  3. AMIKACIN [Concomitant]
     Active Substance: AMIKACIN
     Indication: Product used for unknown indication
     Dosage: UNK
     Route: 042

REACTIONS (1)
  - Drug hypersensitivity [Unknown]
